FAERS Safety Report 9012495 (Version 1)
Quarter: 2013Q1

REPORT INFORMATION
  Report Type: Spontaneous
  Country: US (occurrence: US)
  Receive Date: 20130114
  Receipt Date: 20130114
  Transmission Date: 20140127
  Serious: No
  Sender: FDA-Public Use
  Company Number: US-B.I. PHARMACEUTICALS,INC./RIDGEFIELD-2012-BI-04373BP

PATIENT
  Sex: Female

DRUGS (1)
  1. SPIRIVA [Suspect]
     Indication: DYSPHONIA
     Dosage: 18 MG
     Route: 055
     Dates: start: 20121217, end: 20121221

REACTIONS (1)
  - Dyspnoea [Recovered/Resolved]
